FAERS Safety Report 26082542 (Version 1)
Quarter: 2025Q4

REPORT INFORMATION
  Report Type: Spontaneous
  Country: US (occurrence: US)
  Receive Date: 20251124
  Receipt Date: 20251124
  Transmission Date: 20260117
  Serious: No
  Sender: INSMED
  Company Number: US-INSMED, INC.-2025-01171-US

PATIENT

DRUGS (4)
  1. ARIKAYCE [Suspect]
     Active Substance: AMIKACIN
     Indication: Mycobacterium avium complex infection
     Dosage: UNK, UNK
     Route: 055
  2. ARIKAYCE [Suspect]
     Active Substance: AMIKACIN
     Indication: Ill-defined disorder
  3. NUZYRA [Concomitant]
     Active Substance: OMADACYCLINE
     Indication: Mycobacterium avium complex infection
     Dosage: UNK, UNK
     Route: 048
     Dates: end: 202411
  4. NUZYRA [Concomitant]
     Active Substance: OMADACYCLINE
     Indication: Ill-defined disorder

REACTIONS (1)
  - Unevaluable event [Unknown]
